FAERS Safety Report 15156912 (Version 2)
Quarter: 2018Q3

REPORT INFORMATION
  Report Type: Report from Study
  Country: JP (occurrence: JP)
  Receive Date: 20180718
  Receipt Date: 20180727
  Transmission Date: 20181010
  Serious: Yes (Death)
  Sender: FDA-Public Use
  Company Number: JP-BEH-2018092846

PATIENT
  Age: 81 Year
  Sex: Male
  Weight: 70 kg

DRUGS (15)
  1. KAYTWO [Concomitant]
     Active Substance: MENATETRENONE
     Dosage: 20 MG, UNK
     Route: 065
     Dates: start: 20171112, end: 20171112
  2. LISINOPRIL. [Concomitant]
     Active Substance: LISINOPRIL
     Dosage: UNK
     Route: 048
     Dates: end: 20180211
  3. GASLON [Concomitant]
     Active Substance: IRSOGLADINE MALEATE
     Dosage: UNK
     Route: 048
     Dates: end: 20180211
  4. NEUROTROPIN                        /00398601/ [Concomitant]
     Active Substance: CYANOCOBALAMIN\LIDOCAINE HYDROCHLORIDE\PYRIDOXINE HYDROCHLORIDE\THIAMINE HYDROCHLORIDE
     Dosage: UNK
     Route: 048
     Dates: end: 20180211
  5. WARFARIN [Concomitant]
     Active Substance: WARFARIN
     Dosage: 0.75 MG, UNK
     Route: 048
     Dates: start: 201204, end: 20171112
  6. ITOROL [Concomitant]
     Active Substance: ISOSORBIDE MONONITRATE
     Dosage: UNK
     Route: 048
     Dates: end: 20180211
  7. BAYASPIRIN [Concomitant]
     Active Substance: ASPIRIN
     Dosage: UNK
     Route: 048
     Dates: end: 20180211
  8. MAGMITT [Concomitant]
     Active Substance: MAGNESIUM OXIDE
     Dosage: UNK
     Route: 048
     Dates: end: 20180211
  9. BERIPLEX P/N [Suspect]
     Active Substance: COAGULATION FACTOR IX HUMAN\COAGULATION FACTOR VII HUMAN\COAGULATION FACTOR X HUMAN\PROTEIN C\PROTEIN S HUMAN\PROTHROMBIN
     Indication: HAEMORRHAGE
     Dosage: 1750 IU, UNK
     Route: 042
     Dates: start: 20171112
  10. BERIPLEX P/N [Suspect]
     Active Substance: COAGULATION FACTOR IX HUMAN\COAGULATION FACTOR VII HUMAN\COAGULATION FACTOR X HUMAN\PROTEIN C\PROTEIN S HUMAN\PROTHROMBIN
     Indication: SURGERY
  11. ARTIST [Concomitant]
     Active Substance: CARVEDILOL
     Dosage: UNK
     Route: 048
     Dates: end: 20180211
  12. CRESTOR [Concomitant]
     Active Substance: ROSUVASTATIN CALCIUM
     Dosage: UNK
     Route: 048
     Dates: end: 20180211
  13. LYRICA [Concomitant]
     Active Substance: PREGABALIN
     Dosage: UNK
     Route: 048
     Dates: end: 20180211
  14. ZYLORIC [Concomitant]
     Active Substance: ALLOPURINOL
     Dosage: UNK
     Route: 048
     Dates: end: 20180211
  15. HYPEN                              /00340101/ [Concomitant]
     Active Substance: INDAPAMIDE
     Dosage: UNK
     Route: 048
     Dates: end: 20180211

REACTIONS (1)
  - Death [Fatal]

NARRATIVE: CASE EVENT DATE: 20180211
